FAERS Safety Report 9123444 (Version 1)
Quarter: 2013Q1

REPORT INFORMATION
  Report Type: Spontaneous
  Country: FR (occurrence: FR)
  Receive Date: 20130115
  Receipt Date: 20130115
  Transmission Date: 20140127
  Serious: Yes (Hospitalization)
  Sender: FDA-Public Use
  Company Number: FR-BRISTOL-MYERS SQUIBB COMPANY-17272154

PATIENT
  Age: 94 Year
  Sex: Female

DRUGS (13)
  1. COUMADINE [Suspect]
     Indication: PULMONARY EMBOLISM
     Route: 048
     Dates: end: 20120506
  2. DISCOTRINE [Concomitant]
  3. PROCORALAN [Concomitant]
  4. TAHOR [Concomitant]
     Dosage: 1DF:20UNITS NOS
  5. OLMESARTAN MEDOXOMIL + HCTZ [Concomitant]
  6. SINGULAIR [Concomitant]
  7. TRENTADIL [Concomitant]
  8. BECLOMETASONE DIPROPIONATE+FORMOTEROL FUMARATE [Concomitant]
  9. VENTOLINE [Concomitant]
  10. EUPANTOL [Concomitant]
  11. URBANYL [Concomitant]
  12. DOLIPRANE [Concomitant]
  13. ALLOPURINOL [Concomitant]

REACTIONS (5)
  - Haematemesis [Recovered/Resolved]
  - Diarrhoea [Recovered/Resolved]
  - Dehydration [Recovered/Resolved]
  - Renal failure acute [Recovered/Resolved]
  - Overdose [Unknown]
